FAERS Safety Report 21906713 (Version 2)
Quarter: 2023Q2

REPORT INFORMATION
  Report Type: Spontaneous
  Country: US (occurrence: US)
  Receive Date: 20230125
  Receipt Date: 20230531
  Transmission Date: 20230721
  Serious: Yes (Hospitalization, Other)
  Sender: FDA-Public Use
  Company Number: US-BRISTOL-MYERS SQUIBB COMPANY-2023-010071

PATIENT
  Age: 79 Year
  Sex: Female

DRUGS (2)
  1. POMALYST [Suspect]
     Active Substance: POMALIDOMIDE
     Indication: Product used for unknown indication
     Dosage: EVERY OTHER DAY.
     Route: 048
     Dates: start: 202204
  2. POMALYST [Suspect]
     Active Substance: POMALIDOMIDE
     Dosage: POMALYST DOSE WAS DECREASED FROM 3MG EVERY DAY TO 2MG EVERY OTHER DAY FOR 3WEEKS, THEN 2 WEEKS OFF.
     Route: 048
     Dates: start: 202204

REACTIONS (3)
  - Neutropenia [Unknown]
  - Infection [Unknown]
  - Off label use [Unknown]

NARRATIVE: CASE EVENT DATE: 20220418
